FAERS Safety Report 16578018 (Version 1)
Quarter: 2019Q3

REPORT INFORMATION
  Report Type: Spontaneous
  Country: US (occurrence: US)
  Receive Date: 20190716
  Receipt Date: 20190716
  Transmission Date: 20191004
  Serious: No
  Sender: FDA-Public Use
  Company Number: US-PFIZER INC-2016436474

PATIENT
  Age: 49 Year
  Sex: Male

DRUGS (14)
  1. LYRICA [Suspect]
     Active Substance: PREGABALIN
     Indication: LUMBAR RADICULOPATHY
     Dosage: 200 MG, 3X/DAY
     Route: 048
     Dates: start: 20161027
  2. LYRICA [Suspect]
     Active Substance: PREGABALIN
     Indication: BACK PAIN
     Dosage: 200 MG, 3X/DAY
     Route: 048
     Dates: start: 20160406
  3. MULTI-VITAMINS VITAFIT [Concomitant]
     Active Substance: VITAMINS
     Indication: NAUSEA
     Dosage: 1 DF, DAILY
     Route: 048
  4. MULTI-VITAMINS VITAFIT [Concomitant]
     Active Substance: VITAMINS
     Indication: VOMITING
  5. PRAVACHOL [Concomitant]
     Active Substance: PRAVASTATIN SODIUM
     Indication: TYPE V HYPERLIPIDAEMIA
     Dosage: 20 MG, DAILY (AT BEDTIME)
     Route: 048
  6. MOTRIN [Concomitant]
     Active Substance: IBUPROFEN
     Indication: TENDONITIS
     Dosage: 800 MG, 3X/DAY (EVERY 8 HOURS WITH FOOD)
     Route: 048
  7. PRILOSEC [Concomitant]
     Active Substance: OMEPRAZOLE MAGNESIUM
     Indication: GASTROOESOPHAGEAL REFLUX DISEASE
     Dosage: 20 MG, DAILY
     Route: 048
  8. PROBIOTICS [Concomitant]
     Active Substance: PROBIOTICS NOS
     Dosage: 1 DF, DAILY
     Route: 048
  9. PRILOSEC [Concomitant]
     Active Substance: OMEPRAZOLE MAGNESIUM
     Indication: OESOPHAGITIS
  10. ASPIRIN. [Concomitant]
     Active Substance: ASPIRIN
     Dosage: 81 MG, DAILY
     Route: 048
  11. LYRICA [Suspect]
     Active Substance: PREGABALIN
     Indication: INTERVERTEBRAL DISC PROTRUSION
     Dosage: 200 MG, 3X/DAY(1 CAPSULE THREE TIMES A DAY 90 DAYS)
     Route: 048
  12. COREG [Concomitant]
     Active Substance: CARVEDILOL
     Indication: ESSENTIAL HYPERTENSION
     Dosage: 6.25 MG, 2X/DAY (WITH FOOD)
     Route: 048
  13. MOTRIN [Concomitant]
     Active Substance: IBUPROFEN
     Indication: PAIN IN EXTREMITY
  14. PROZAC [Concomitant]
     Active Substance: FLUOXETINE HYDROCHLORIDE
     Dosage: 40 MG, DAILY
     Route: 048

REACTIONS (1)
  - Withdrawal syndrome [Unknown]
